FAERS Safety Report 22528615 (Version 1)
Quarter: 2023Q2

REPORT INFORMATION
  Report Type: Report from Study
  Country: DE (occurrence: DE)
  Receive Date: 20230607
  Receipt Date: 20230607
  Transmission Date: 20230721
  Serious: Yes (Other)
  Sender: FDA-Public Use
  Company Number: DE-ABBVIE-5184802

PATIENT
  Age: 63 Year
  Sex: Male

DRUGS (2)
  1. HUMIRA [Suspect]
     Active Substance: ADALIMUMAB
     Indication: Crohn^s disease
     Route: 058
     Dates: start: 202302
  2. HUMIRA [Suspect]
     Active Substance: ADALIMUMAB
     Route: 058
     Dates: start: 2017, end: 202302

REACTIONS (9)
  - Medical device implantation [Recovered/Resolved]
  - Drug specific antibody present [Not Recovered/Not Resolved]
  - Renal impairment [Not Recovered/Not Resolved]
  - Crohn^s disease [Recovered/Resolved]
  - Fistula [Not Recovered/Not Resolved]
  - Therapeutic product effect decreased [Not Recovered/Not Resolved]
  - Iron deficiency [Not Recovered/Not Resolved]
  - Psoriasis [Recovering/Resolving]
  - Gout [Not Recovered/Not Resolved]

NARRATIVE: CASE EVENT DATE: 20221101
